FAERS Safety Report 20592755 (Version 2)
Quarter: 2023Q1

REPORT INFORMATION
  Report Type: Spontaneous
  Country: US (occurrence: None)
  Receive Date: 20220314
  Receipt Date: 20230223
  Transmission Date: 20230417
  Serious: No
  Sender: FDA-Public Use
  Company Number: US-ROCHE-2870977

PATIENT
  Sex: Female

DRUGS (1)
  1. XOLAIR [Suspect]
     Active Substance: OMALIZUMAB
     Indication: Product used for unknown indication
     Dosage: 2 SHOTS EVERY 1 MONTH
     Route: 065

REACTIONS (4)
  - Maternal exposure during pregnancy [Unknown]
  - Nausea [Unknown]
  - Urticaria [Unknown]
  - Discomfort [Unknown]
